FAERS Safety Report 5150278-4 (Version None)
Quarter: 2006Q4

REPORT INFORMATION
  Report Type: 
  Country: None (occurrence: None)
  Receive Date: 20061114
  Receipt Date: 20061109
  Transmission Date: 20070319
  Serious: Yes (Death)
  Sender: FDA-Public Use
  Company Number: US-NOVOPROD-258449

PATIENT
  Age: 46 Year
  Sex: Male
  Weight: 70 kg

DRUGS (2)
  1. NOVOSEVEN [Suspect]
     Indication: OPERATIVE HAEMORRHAGE
     Dosage: 90 UG/KG, SINGLE
     Route: 042
     Dates: start: 20060526, end: 20060526
  2. NOVOSEVEN [Suspect]
     Dosage: 4800 UG FIVE HOURS APART X 2 DOSES
     Route: 042
     Dates: start: 20060526, end: 20060526

REACTIONS (1)
  - CEREBRAL INFARCTION [None]
